FAERS Safety Report 7002181-2 (Version None)
Quarter: 2010Q3

REPORT INFORMATION
  Report Type: 
  Country: None (occurrence: None)
  Receive Date: 20100920
  Receipt Date: 20100908
  Transmission Date: 20110219
  Serious: Yes (Death, Other)
  Sender: FDA-Public Use
  Company Number: US-PFIZER INC-2009230600

PATIENT
  Sex: Female
  Weight: 86.168 kg

DRUGS (15)
  1. REVATIO [Suspect]
     Indication: PULMONARY ARTERIAL HYPERTENSION
     Dosage: 40 MG, 3X/DAY
     Dates: start: 20070101
  2. REVATIO [Suspect]
     Dosage: 20 MG, 3X/DAY
     Dates: start: 20050701
  3. REMODULIN [Suspect]
     Indication: PULMONARY ARTERIAL HYPERTENSION
     Dosage: 80 NG/KG/MIN
     Route: 042
     Dates: start: 20080101
  4. REMODULIN [Suspect]
     Dosage: 94 NG/KG/MIN
     Route: 042
     Dates: start: 20070101
  5. LASIX [Concomitant]
     Dosage: 60 MG, 3X/DAY
     Dates: start: 20050101
  6. PREMARIN [Concomitant]
     Dosage: UNK
     Dates: start: 20050101
  7. PREMARIN [Concomitant]
     Dates: start: 20050101
  8. NEXIUM [Concomitant]
     Dosage: UNK
     Dates: start: 20050101
  9. NEXIUM [Concomitant]
     Dates: start: 20050101
  10. MAGNESIUM [Concomitant]
     Dosage: UNK
  11. CLARITIN [Concomitant]
     Dosage: UNK
     Dates: start: 20070101
  12. INSULIN [Concomitant]
     Dosage: UNK
  13. OXYGEN [Concomitant]
     Dosage: UNK
  14. AMBRISENTAN [Concomitant]
     Dosage: 10 MG, 1X/DAY
     Dates: start: 20070101
  15. POTASSIUM CHLORIDE [Concomitant]
     Dosage: 20 MEQ, 2X/DAY

REACTIONS (7)
  - ANXIETY [None]
  - ASCITES [None]
  - DEATH [None]
  - HYPERTENSION [None]
  - OEDEMA [None]
  - RIGHT VENTRICULAR FAILURE [None]
  - TACHYCARDIA [None]
